FAERS Safety Report 13187493 (Version 3)
Quarter: 2017Q3

REPORT INFORMATION
  Report Type: Spontaneous
  Country: US (occurrence: US)
  Receive Date: 20170206
  Receipt Date: 20170913
  Transmission Date: 20171127
  Serious: Yes (Other)
  Sender: FDA-Public Use
  Company Number: US-PFIZER INC-2016501549

PATIENT
  Age: 93 Year
  Sex: Male
  Weight: 71.18 kg

DRUGS (7)
  1. IBRANCE [Suspect]
     Active Substance: PALBOCICLIB
     Dosage: 75 MG, CYCLIC (DAILY FOR 21 DAYS FOLLOWED BY SEVEN DAYS OFF)
     Route: 048
     Dates: start: 20161128, end: 20170712
  2. IBRANCE [Suspect]
     Active Substance: PALBOCICLIB
     Indication: DERMATOFIBROSARCOMA PROTUBERANS
     Dosage: 75 MG, CYCLIC (DAILY FOR 21 DAYS FOLLOWED BY 7 DAYS OFF REPEAT CYCLE)
     Route: 048
     Dates: start: 201610, end: 2017
  3. TRIAMTERENE AND HYDROCHLOROTHIAZIDE [Concomitant]
     Active Substance: HYDROCHLOROTHIAZIDE\TRIAMTERENE
     Dosage: 1 DF, DAILY, [HYDROCHLOROTHIAZIDE 37.5 MG]/[TRIAMTERENE 25 MG]
     Route: 048
  4. ALLOPURINOL. [Concomitant]
     Active Substance: ALLOPURINOL
     Dosage: 100 MG, DAILY
     Route: 048
  5. SIMVASTATIN. [Concomitant]
     Active Substance: SIMVASTATIN
     Dosage: 80 MG, DAILY
  6. IBRANCE [Suspect]
     Active Substance: PALBOCICLIB
     Dosage: 125 MG, UNK
     Dates: start: 2017, end: 2017
  7. CLINDAMYCIN HCL [Concomitant]
     Active Substance: CLINDAMYCIN HYDROCHLORIDE
     Indication: SKIN INFECTION
     Dosage: 300 MG, 2X/DAY (FOR 10 DAYS)
     Route: 048

REACTIONS (16)
  - Arthritis [Unknown]
  - Fatigue [Not Recovered/Not Resolved]
  - Drug intolerance [Unknown]
  - Dyspnoea exertional [Unknown]
  - Muscular weakness [Unknown]
  - Thrombocytopenia [Unknown]
  - Weight decreased [Not Recovered/Not Resolved]
  - Cough [Unknown]
  - Asthenia [Unknown]
  - Gait disturbance [Unknown]
  - Product use in unapproved indication [Unknown]
  - Restless legs syndrome [Unknown]
  - Decreased appetite [Not Recovered/Not Resolved]
  - Musculoskeletal stiffness [Unknown]
  - Mobility decreased [Unknown]
  - Neoplasm progression [Unknown]

NARRATIVE: CASE EVENT DATE: 201610
